FAERS Safety Report 8912744 (Version 1)
Quarter: 2012Q4

REPORT INFORMATION
  Report Type: Report from Study
  Country: CZ (occurrence: CZ)
  Receive Date: 20121116
  Receipt Date: 20121116
  Transmission Date: 20130627
  Serious: Yes (Hospitalization)
  Sender: FDA-Public Use
  Company Number: CZ-ROCHE-1155297

PATIENT
  Age: 68 Year
  Sex: Male
  Weight: 131 kg

DRUGS (12)
  1. BEVACIZUMAB [Suspect]
     Indication: COLORECTAL CANCER METASTATIC
     Route: 042
     Dates: start: 20121004
  2. OXALIPLATIN [Suspect]
     Indication: COLORECTAL CANCER METASTATIC
     Route: 042
  3. 5-FU [Suspect]
     Indication: COLORECTAL CANCER METASTATIC
     Route: 040
     Dates: start: 20121004
  4. 5-FU [Suspect]
     Route: 050
     Dates: start: 20121004
  5. LEUCOVORIN [Suspect]
     Indication: COLORECTAL CANCER METASTATIC
     Route: 042
     Dates: start: 20121004
  6. ONDANSETRON [Concomitant]
     Route: 065
     Dates: start: 20121004, end: 20121004
  7. DEXAMETHASONE [Concomitant]
     Route: 065
     Dates: start: 20121004, end: 20121004
  8. CALCIUM CHLORIDE [Concomitant]
     Route: 065
     Dates: start: 20121004, end: 20121004
  9. MAGNESIUM SULFATE [Concomitant]
     Route: 065
     Dates: start: 20121004, end: 20121004
  10. PRESTARIUM NEO [Concomitant]
     Route: 065
     Dates: start: 2011
  11. ANOPYRIN [Concomitant]
     Route: 065
     Dates: start: 2009
  12. SIMVASTATIN [Concomitant]
     Dosage: Brand: Tulip
     Route: 065
     Dates: start: 2011

REACTIONS (1)
  - Atrial fibrillation [Not Recovered/Not Resolved]
